FAERS Safety Report 20756198 (Version 1)
Quarter: 2022Q2

REPORT INFORMATION
  Report Type: Spontaneous
  Country: US (occurrence: None)
  Receive Date: 20220426
  Receipt Date: 20220426
  Transmission Date: 20220721
  Serious: Yes (Disabling)
  Sender: FDA-Public Use
  Company Number: None

PATIENT
  Age: 50 Year
  Sex: Female
  Weight: 73.35 kg

DRUGS (1)
  1. EMGALITY [Suspect]
     Active Substance: GALCANEZUMAB-GNLM
     Indication: Cluster headache
     Dosage: OTHER QUANTITY : 3 INJECTION(S);?OTHER FREQUENCY : ONCE A MONTH;?
     Route: 058
     Dates: start: 20220323, end: 20220422

REACTIONS (17)
  - Pain [None]
  - Migraine [None]
  - Head discomfort [None]
  - Anxiety [None]
  - Retching [None]
  - Confusional state [None]
  - Dizziness [None]
  - Nausea [None]
  - Alopecia [None]
  - Dry skin [None]
  - Dry skin [None]
  - Tinnitus [None]
  - Asthenia [None]
  - Fatigue [None]
  - Arthralgia [None]
  - Anxiety [None]
  - Eye pain [None]

NARRATIVE: CASE EVENT DATE: 20220423
